FAERS Safety Report 6575270-4 (Version None)
Quarter: 2010Q1

REPORT INFORMATION
  Report Type: 
  Country: None (occurrence: None)
  Receive Date: 20100209
  Receipt Date: 20100202
  Transmission Date: 20100710
  Serious: Yes (Other)
  Sender: FDA-Public Use
  Company Number: US-ROCHE-660810

PATIENT
  Sex: Female
  Weight: 56.8 kg

DRUGS (5)
  1. BEVACIZUMAB [Suspect]
     Route: 031
  2. BEVACIZUMAB [Suspect]
     Dosage: FREQUENCY REPORTED AS 1XMO
     Route: 031
     Dates: start: 20090101
  3. FASLODEX [Concomitant]
     Indication: DRUG USE FOR UNKNOWN INDICATION
  4. TRIAMTERENE [Concomitant]
     Indication: DRUG USE FOR UNKNOWN INDICATION
  5. ATENOLOL [Concomitant]
     Indication: DRUG USE FOR UNKNOWN INDICATION

REACTIONS (1)
  - EYE PAIN [None]
